FAERS Safety Report 21643503 (Version 1)
Quarter: 2022Q4

REPORT INFORMATION
  Report Type: Report from Study
  Country: DE (occurrence: DE)
  Receive Date: 20221125
  Receipt Date: 20221125
  Transmission Date: 20230113
  Serious: Yes (Life-Threatening)
  Sender: FDA-Public Use
  Company Number: DE-002147023-NVSC2022DE262909

PATIENT
  Age: 63 Year
  Sex: Female

DRUGS (5)
  1. TAFINLAR [Suspect]
     Active Substance: DABRAFENIB MESYLATE
     Indication: Malignant melanoma
     Dosage: UNK
     Route: 065
     Dates: start: 201909, end: 201912
  2. TAFINLAR [Suspect]
     Active Substance: DABRAFENIB MESYLATE
     Dosage: UNK
     Route: 065
     Dates: start: 201912, end: 202007
  3. MEKINIST [Suspect]
     Active Substance: TRAMETINIB DIMETHYL SULFOXIDE
     Indication: Malignant melanoma
     Dosage: UNK
     Route: 065
     Dates: start: 201909, end: 201912
  4. MEKINIST [Suspect]
     Active Substance: TRAMETINIB DIMETHYL SULFOXIDE
     Dosage: UNK
     Route: 065
     Dates: start: 201912, end: 202007
  5. INTERFERON [Suspect]
     Active Substance: INTERFERON
     Indication: Malignant melanoma
     Dosage: UNK
     Route: 065

REACTIONS (13)
  - Feeling abnormal [Unknown]
  - Thyroid hormones decreased [Unknown]
  - Fibromyalgia [Unknown]
  - Arthralgia [Unknown]
  - Illness [Unknown]
  - Colitis [Not Recovered/Not Resolved]
  - Lymphoedema [Unknown]
  - Pyrexia [Unknown]
  - Rash [Unknown]
  - Pruritus [Unknown]
  - Diarrhoea [Unknown]
  - Erythema [Unknown]
  - Fatigue [Unknown]
